FAERS Safety Report 21609652 (Version 2)
Quarter: 2022Q4

REPORT INFORMATION
  Report Type: Spontaneous
  Country: US (occurrence: US)
  Receive Date: 20221117
  Receipt Date: 20221118
  Transmission Date: 20230113
  Serious: No
  Sender: FDA-Public Use
  Company Number: US-PFIZER INC-202201307607

PATIENT
  Age: 52 Year
  Sex: Female

DRUGS (1)
  1. XALKORI [Suspect]
     Active Substance: CRIZOTINIB
     Dosage: UNK

REACTIONS (5)
  - Upper respiratory tract infection [Unknown]
  - Immune system disorder [Unknown]
  - Vitreous floaters [Unknown]
  - Oedema [Unknown]
  - Nasopharyngitis [Unknown]
